FAERS Safety Report 5720780-2 (Version None)
Quarter: 2008Q2

REPORT INFORMATION
  Report Type: 
  Country: None (occurrence: None)
  Receive Date: 20080425
  Receipt Date: 20080425
  Transmission Date: 20081010
  Serious: No
  Sender: FDA-Public Use
  Company Number: None

PATIENT
  Age: 58 Year
  Sex: Female

DRUGS (1)
  1. IOPROMIDE [Suspect]
     Dosage: 150  OTHER  IV
     Route: 042
     Dates: start: 20070621, end: 20070621

REACTIONS (1)
  - RASH [None]
